FAERS Safety Report 8295407-9 (Version None)
Quarter: 2012Q2

REPORT INFORMATION
  Report Type: 
  Country: None (occurrence: None)
  Receive Date: 20120418
  Receipt Date: 20120330
  Transmission Date: 20120825
  Serious: Yes (Other)
  Sender: FDA-Public Use
  Company Number: US-ROCHE-784300

PATIENT
  Sex: Male
  Weight: 115 kg

DRUGS (9)
  1. COPEGUS [Suspect]
     Route: 048
  2. HYDROCHLOROTHIAZIDE [Concomitant]
     Indication: HYPERTENSION
  3. LEXAPRO [Concomitant]
     Indication: DEPRESSION
  4. FILIBUVIR [Suspect]
     Indication: HEPATITIS C
     Dates: start: 20100827, end: 20110728
  5. PEGINTERFERON ALFA-2A [Suspect]
     Indication: HEPATITIS C
     Route: 058
  6. COPEGUS [Suspect]
     Indication: HEPATITIS C
     Route: 048
  7. PROMETHAZINE HCL [Concomitant]
     Indication: NAUSEA
  8. HALCION [Concomitant]
     Indication: INSOMNIA
  9. XANAX [Concomitant]
     Indication: ANGER

REACTIONS (2)
  - BLOOD URIC ACID INCREASED [None]
  - BLOOD UREA NITROGEN/CREATININE RATIO INCREASED [None]
